FAERS Safety Report 9393086 (Version 1)
Quarter: 2013Q3

REPORT INFORMATION
  Report Type: Report from Study
  Country: US (occurrence: US)
  Receive Date: 20130710
  Receipt Date: 20130710
  Transmission Date: 20140515
  Serious: Yes (Hospitalization)
  Sender: FDA-Public Use
  Company Number: US-JNJFOC-20130701580

PATIENT
  Age: 15 Year
  Sex: Female
  Weight: 53.6 kg

DRUGS (10)
  1. REMICADE [Suspect]
     Indication: COLITIS
     Route: 042
     Dates: start: 20130311
  2. REMICADE [Suspect]
     Indication: COLITIS
     Route: 042
     Dates: start: 20130604
  3. REMICADE [Suspect]
     Indication: COLITIS
     Route: 042
     Dates: start: 20111115
  4. 5-ASA [Concomitant]
     Indication: COLITIS
     Route: 048
  5. OMEPRAZOLE [Concomitant]
     Route: 065
  6. MIRALAX [Concomitant]
     Route: 065
  7. FLONASE [Concomitant]
     Route: 065
  8. NEURONTIN [Concomitant]
     Route: 065
  9. ACETAMINOPHEN [Concomitant]
     Route: 065
     Dates: start: 20130604
  10. ZYRTEC [Concomitant]
     Route: 065

REACTIONS (1)
  - Faecaloma [Recovered/Resolved]
